FAERS Safety Report 16975999 (Version 1)
Quarter: 2019Q4

REPORT INFORMATION
  Report Type: Report from Study
  Country: ZA (occurrence: ZA)
  Receive Date: 20191030
  Receipt Date: 20191030
  Transmission Date: 20200122
  Serious: Yes (Other)
  Sender: FDA-Public Use
  Company Number: PHHY2018ZA170699

PATIENT
  Age: 28 Year
  Sex: Female

DRUGS (2)
  1. VITAMIN B12 [Concomitant]
     Active Substance: CYANOCOBALAMIN
     Indication: PRODUCT USED FOR UNKNOWN INDICATION
     Dosage: UNK
     Route: 065
  2. TUVIGIN [Suspect]
     Active Substance: FINGOLIMOD HYDROCHLORIDE
     Indication: RELAPSING-REMITTING MULTIPLE SCLEROSIS
     Dosage: 0.5 MG, UNK
     Route: 048
     Dates: start: 20181120

REACTIONS (9)
  - Muscular weakness [Unknown]
  - Lens disorder [Unknown]
  - Multiple sclerosis [Unknown]
  - Depressed mood [Unknown]
  - Back pain [Unknown]
  - Colour blindness [Unknown]
  - Vasodilatation [Unknown]
  - Visual impairment [Unknown]
  - Optic disc disorder [Unknown]

NARRATIVE: CASE EVENT DATE: 20181125
